FAERS Safety Report 4656272-1 (Version None)
Quarter: 2005Q2

REPORT INFORMATION
  Report Type: 
  Country: None (occurrence: None)
  Receive Date: 20050509
  Receipt Date: 20050322
  Transmission Date: 20051028
  Serious: No
  Sender: FDA-Public Use
  Company Number: US-GLAXOSMITHKLINE-A0550849A

PATIENT
  Age: 47 Year
  Sex: Male

DRUGS (4)
  1. AVANDAMET [Suspect]
     Dosage: 1TAB TWICE PER DAY
     Route: 048
     Dates: start: 20040901, end: 20050101
  2. LIPITOR [Concomitant]
  3. ACTOS [Concomitant]
  4. GLIPIZIDE [Concomitant]

REACTIONS (1)
  - DRUG INEFFECTIVE [None]
